FAERS Safety Report 14122300 (Version 1)
Quarter: 2017Q4

REPORT INFORMATION
  Report Type: Spontaneous
  Country: US (occurrence: US)
  Receive Date: 20171024
  Receipt Date: 20171024
  Transmission Date: 20180321
  Serious: Yes (Hospitalization, Other)
  Sender: FDA-Public Use
  Company Number: US-INTERCEPT-PMOCA2017000549

PATIENT
  Age: 39 Year
  Sex: Female

DRUGS (2)
  1. OCALIVA [Suspect]
     Active Substance: OBETICHOLIC ACID
     Indication: BILIARY CIRRHOSIS PRIMARY
     Dosage: 5 MG, QD
     Route: 048
     Dates: start: 201702
  2. UDCA [Concomitant]
     Active Substance: URSODIOL

REACTIONS (5)
  - Blood bilirubin increased [Not Recovered/Not Resolved]
  - Jaundice [Unknown]
  - Urinary tract infection [Unknown]
  - Cholangitis [Unknown]
  - Drug prescribing error [Unknown]

NARRATIVE: CASE EVENT DATE: 20170530
